FAERS Safety Report 6445287-9 (Version None)
Quarter: 2009Q4

REPORT INFORMATION
  Report Type: 
  Country: None (occurrence: None)
  Receive Date: 20091118
  Receipt Date: 20091112
  Transmission Date: 20100525
  Serious: Yes (Death, Congenital Anomaly, Other)
  Sender: FDA-Public Use
  Company Number: GB-ABBOTT-09P-167-0583304-00

PATIENT

DRUGS (5)
  1. KALETRA [Suspect]
     Indication: DRUG EXPOSURE DURING PREGNANCY
     Route: 064
  2. VIRAMUNE [Suspect]
     Indication: DRUG EXPOSURE DURING PREGNANCY
     Route: 064
  3. EFAVIRENZ [Suspect]
     Indication: DRUG EXPOSURE DURING PREGNANCY
     Route: 064
  4. COMBIVIR [Suspect]
     Indication: DRUG EXPOSURE DURING PREGNANCY
     Route: 064
  5. KIVEXA [Suspect]
     Indication: DRUG EXPOSURE DURING PREGNANCY
     Route: 064

REACTIONS (10)
  - CARDIAC MALPOSITION [None]
  - DEFORMITY THORAX [None]
  - DIAPHRAGMATIC APLASIA [None]
  - DRUG EXPOSURE DURING PREGNANCY [None]
  - EXOMPHALOS [None]
  - FOETAL DISORDER [None]
  - HEPATIC DISPLACEMENT [None]
  - MICROENCEPHALY [None]
  - MULTIPLE CONGENITAL ABNORMALITIES [None]
  - PNEUMOTHORAX [None]
